FAERS Safety Report 5008084-7 (Version None)
Quarter: 2006Q2

REPORT INFORMATION
  Report Type: 
  Country: None (occurrence: None)
  Receive Date: 20060405
  Receipt Date: 20060309
  Transmission Date: 20061013
  Serious: Yes (Other)
  Sender: FDA-Public Use
  Company Number: 25643

PATIENT
  Age: 64 Year
  Sex: Male

DRUGS (1)
  1. OCTREOTIDE ACETATE INJ. PF 50MCG/ML (1ML) - BEDFORD LABS, INC. [Suspect]
     Indication: VARICES OESOPHAGEAL
     Dosage: 50MCG/HR/IV
     Route: 042

REACTIONS (1)
  - FLUSHING [None]
